FAERS Safety Report 15305498 (Version 2)
Quarter: 2018Q4

REPORT INFORMATION
  Report Type: Report from Study
  Country: None (occurrence: US)
  Receive Date: 20180822
  Receipt Date: 20181004
  Transmission Date: 20190204
  Serious: Yes (Hospitalization, Other)
  Sender: FDA-Public Use
  Company Number: US-ABBVIE-18K-163-2436289-00

PATIENT
  Age: 61 Year
  Sex: Male
  Weight: 99.88 kg

DRUGS (3)
  1. SIMVASTATIN. [Concomitant]
     Active Substance: SIMVASTATIN
     Indication: BLOOD CHOLESTEROL INCREASED
  2. ATENOLOL. [Concomitant]
     Active Substance: ATENOLOL
     Indication: HYPERTENSION
  3. HUMIRA [Suspect]
     Active Substance: ADALIMUMAB
     Indication: COLITIS ULCERATIVE
     Route: 058
     Dates: start: 20180703, end: 20180717

REACTIONS (29)
  - Pollakiuria [Not Recovered/Not Resolved]
  - Gastrointestinal haemorrhage [Unknown]
  - Peripheral swelling [Recovering/Resolving]
  - Influenza like illness [Recovered/Resolved]
  - Arthralgia [Not Recovered/Not Resolved]
  - Swelling [Unknown]
  - Muscle spasms [Recovered/Resolved]
  - Chills [Recovered/Resolved]
  - Mucous stools [Not Recovered/Not Resolved]
  - Feeling abnormal [Unknown]
  - Tremor [Recovered/Resolved]
  - Drug ineffective [Unknown]
  - Gait disturbance [Recovering/Resolving]
  - Urinary incontinence [Not Recovered/Not Resolved]
  - Hyperhidrosis [Recovering/Resolving]
  - Infection [Unknown]
  - Seizure [Recovering/Resolving]
  - Chills [Recovered/Resolved]
  - Chromaturia [Recovering/Resolving]
  - Hypophagia [Unknown]
  - Gait disturbance [Not Recovered/Not Resolved]
  - Blood potassium decreased [Recovering/Resolving]
  - Rectal haemorrhage [Recovering/Resolving]
  - Weight decreased [Recovering/Resolving]
  - Eye irritation [Recovered/Resolved]
  - Pyrexia [Unknown]
  - Abdominal pain [Recovering/Resolving]
  - Mobility decreased [Not Recovered/Not Resolved]
  - Hyperhidrosis [Recovered/Resolved]

NARRATIVE: CASE EVENT DATE: 2018
